FAERS Safety Report 8610679-6 (Version None)
Quarter: 2012Q3

REPORT INFORMATION
  Report Type: 
  Country: None (occurrence: None)
  Receive Date: 20120808
  Receipt Date: 20120730
  Transmission Date: 20120928
  Serious: Yes (Hospitalization)
  Sender: FDA-Public Use
  Company Number: 136553 - 1

PATIENT
  Age: 68 Year
  Sex: Male
  Weight: 72 kg

DRUGS (1)
  1. LEUCOVORIN CALCIUM [Suspect]
     Indication: COLORECTAL CANCER METASTATIC
     Dosage: 400MG/M2 INTRAVENOUS DAY 1 EVERY 14 DAYS
     Route: 042
     Dates: start: 20120109

REACTIONS (5)
  - LABORATORY TEST INTERFERENCE [None]
  - HEPATOTOXICITY [None]
  - INFECTION [None]
  - FEBRILE NEUTROPENIA [None]
  - METASTASES TO LIVER [None]
